FAERS Safety Report 7427009-8 (Version None)
Quarter: 2011Q2

REPORT INFORMATION
  Report Type: 
  Country: None (occurrence: None)
  Receive Date: 20110420
  Receipt Date: 20110411
  Transmission Date: 20111010
  Serious: Yes (Other)
  Sender: FDA-Public Use
  Company Number: PHHY2011IT32611

PATIENT
  Age: 73 Year
  Sex: Female

DRUGS (2)
  1. WARFARIN [Suspect]
     Dosage: UNK UKN, UNK
  2. BOSWELLI SERRATA DRY EXTRACT [Interacting]
     Indication: OSTEOARTHRITIS
     Dosage: 1500 MG, QD

REACTIONS (3)
  - INTERNATIONAL NORMALISED RATIO INCREASED [None]
  - COAGULATION TIME PROLONGED [None]
  - DRUG INTERACTION [None]
